FAERS Safety Report 10766797 (Version 2)
Quarter: 2015Q1

REPORT INFORMATION
  Report Type: Spontaneous
  Country: AT (occurrence: AT)
  Receive Date: 20150205
  Receipt Date: 20150305
  Transmission Date: 20150721
  Serious: Yes (Other)
  Sender: FDA-Public Use
  Company Number: AT-ACTELION-A-CH2015-112212

PATIENT
  Age: 77 Year
  Sex: Female

DRUGS (12)
  1. EUTHYROX [Concomitant]
     Active Substance: LEVOTHYROXINE SODIUM
     Dosage: 50 MCG, OD
  2. ESOMEPRAZOL [Concomitant]
     Active Substance: ESOMEPRAZOLE
     Dosage: 40 MG, BID
  3. PLAVIX [Concomitant]
     Active Substance: CLOPIDOGREL BISULFATE
     Dosage: 75 MG, OD
  4. URBASON [Concomitant]
     Active Substance: METHYLPREDNISOLONE
     Dosage: 4 MG, BID
  5. IMPORTAL [Concomitant]
     Active Substance: LACTITOL
  6. TRACLEER [Suspect]
     Active Substance: BOSENTAN\BOSENTAN MONOHYDRATE
     Indication: SKIN ULCER
     Dosage: 125 MG, BID
     Route: 048
     Dates: start: 2012
  7. LASIX [Concomitant]
     Active Substance: FUROSEMIDE
     Dosage: UNK
  8. BLOPRESS [Concomitant]
     Active Substance: CANDESARTAN CILEXETIL
     Dosage: 2 MG, BID
  9. CALCIUM D [Concomitant]
     Active Substance: CALCIUM\VITAMIN D
  10. VITAMIN K [Concomitant]
     Active Substance: PHYTONADIONE
  11. MUCOBENE [Concomitant]
     Dosage: 600 MG, TID
  12. KCL [Concomitant]
     Active Substance: POTASSIUM CHLORIDE
     Dosage: 600 MG, OD

REACTIONS (2)
  - Pancreatic carcinoma [Unknown]
  - Metastasis [Unknown]

NARRATIVE: CASE EVENT DATE: 2014
